FAERS Safety Report 5429229-0 (Version None)
Quarter: 2007Q3

REPORT INFORMATION
  Report Type: 
  Country: None (occurrence: None)
  Receive Date: 20070827
  Receipt Date: 20070827
  Transmission Date: 20080115
  Serious: No
  Sender: FDA-Public Use
  Company Number: None

PATIENT
  Age: 33 Year
  Sex: Male

DRUGS (2)
  1. PALIPERIDONE ER 6MG JANSSEN [Suspect]
     Indication: PSYCHOTIC DISORDER
     Dosage: 6MG QD PO
     Route: 048
     Dates: start: 20070809, end: 20070816
  2. PALIPERIDONE ER [Suspect]
     Dosage: 12MG QD PO
     Route: 048
     Dates: start: 20070816, end: 20070821

REACTIONS (1)
  - AKATHISIA [None]
